FAERS Safety Report 6805837-7 (Version None)
Quarter: 2010Q2

REPORT INFORMATION
  Report Type: 
  Country: None (occurrence: None)
  Receive Date: 20100629
  Receipt Date: 20071204
  Transmission Date: 20101027
  Serious: Yes (Other)
  Sender: FDA-Public Use
  Company Number: US-PFIZER INC-2007089064

PATIENT
  Sex: Male

DRUGS (1)
  1. ZYVOXID [Suspect]
     Indication: INFECTION
     Dosage: BID: EVERY DAY
     Dates: start: 20070901, end: 20071019

REACTIONS (2)
  - PLATELET COUNT DECREASED [None]
  - WHITE BLOOD CELL COUNT DECREASED [None]
